FAERS Safety Report 25276228 (Version 1)
Quarter: 2025Q2

REPORT INFORMATION
  Report Type: Report from Study
  Country: US (occurrence: US)
  Receive Date: 20250507
  Receipt Date: 20250507
  Transmission Date: 20250716
  Serious: Yes (Death)
  Sender: ROCHE
  Company Number: US-ROCHE-10000274596

PATIENT
  Age: 68 Year
  Sex: Male

DRUGS (1)
  1. ITOVEBI [Suspect]
     Active Substance: INAVOLISIB
     Indication: Bladder cancer
     Route: 065

REACTIONS (2)
  - Death [Fatal]
  - Off label use [Unknown]
